FAERS Safety Report 11273855 (Version 1)
Quarter: 2015Q3

REPORT INFORMATION
  Report Type: Spontaneous
  Country: US (occurrence: None)
  Receive Date: 20150714
  Receipt Date: 20150714
  Transmission Date: 20151125
  Serious: Yes (Hospitalization)
  Sender: FDA-Public Use
  Company Number: None

PATIENT
  Age: 59 Year
  Sex: Male

DRUGS (14)
  1. FLUOROURACIL. [Suspect]
     Active Substance: FLUOROURACIL
     Route: 042
     Dates: start: 20150710, end: 20150712
  2. OXALIPLATIN. [Suspect]
     Active Substance: OXALIPLATIN
     Route: 042
  3. ORAZEPAM [Concomitant]
  4. EFFEXOR [Concomitant]
     Active Substance: VENLAFAXINE HYDROCHLORIDE
  5. ASPIRIN. [Concomitant]
     Active Substance: ASPIRIN
  6. ABRAXANE [Suspect]
     Active Substance: PACLITAXEL
     Indication: PANCREATIC CARCINOMA
     Route: 042
     Dates: start: 20150710, end: 20150712
  7. LEUCOVORIN. [Suspect]
     Active Substance: LEUCOVORIN
     Route: 042
  8. ENTYL [Concomitant]
  9. MULTIVITAMIN [Concomitant]
     Active Substance: VITAMINS
  10. ABAPENTIN [Concomitant]
  11. REMERON [Concomitant]
     Active Substance: MIRTAZAPINE
  12. POLVITE [Concomitant]
  13. THIAMINE. [Concomitant]
     Active Substance: THIAMINE
  14. PILCARPINE [Concomitant]

REACTIONS (5)
  - Drug ineffective [None]
  - Nausea [None]
  - Abdominal pain [None]
  - Vomiting [None]
  - Constipation [None]

NARRATIVE: CASE EVENT DATE: 20150713
